FAERS Safety Report 5535546-6 (Version None)
Quarter: 2007Q4

REPORT INFORMATION
  Report Type: 
  Country: None (occurrence: None)
  Receive Date: 20071120
  Receipt Date: 20070814
  Transmission Date: 20080405
  Serious: No
  Sender: FDA-Public Use
  Company Number: WAES 0708USA02582

PATIENT
  Age: 82 Year
  Sex: Male

DRUGS (12)
  1. JANUVIA [Suspect]
     Indication: DIABETES MELLITUS
     Dosage: 100 MG DAILY PO
     Route: 048
     Dates: start: 20070812, end: 20070812
  2. ASTELIN [Concomitant]
  3. FLOMAX (MORNIFLUMATE) [Concomitant]
  4. FLONASE [Concomitant]
  5. NITROGLYCERIN [Concomitant]
  6. PALGIC D [Concomitant]
  7. SINGULAIR [Concomitant]
  8. ZOCOR [Concomitant]
  9. CARVEDILOL [Concomitant]
  10. FOSINOPRIL SODIUM [Concomitant]
  11. TRIAMTERENE AND HYDROCHLOROTHIAZIDE [Concomitant]
  12. SOTALOL HYDROCHLORIDE [Concomitant]

REACTIONS (1)
  - BLOOD PRESSURE DECREASED [None]
